FAERS Safety Report 15424797 (Version 2)
Quarter: 2018Q4

REPORT INFORMATION
  Report Type: Spontaneous
  Country: JP (occurrence: JP)
  Receive Date: 20180925
  Receipt Date: 20181113
  Transmission Date: 20190204
  Serious: Yes (Death, Hospitalization)
  Sender: FDA-Public Use
  Company Number: JP-ORPHAN EUROPE-2055317

PATIENT
  Age: 4 Year
  Sex: Male
  Weight: 11.3 kg

DRUGS (10)
  1. CARBAGLU [Suspect]
     Active Substance: CARGLUMIC ACID
     Route: 048
  2. CARBAGLU [Suspect]
     Active Substance: CARGLUMIC ACID
     Route: 048
     Dates: start: 20180901
  3. UBIDECARENONE [Concomitant]
     Active Substance: UBIDECARENONE
  4. CARBAGLU [Suspect]
     Active Substance: CARGLUMIC ACID
     Indication: METHYLMALONIC ACIDURIA
     Route: 048
     Dates: start: 20170601, end: 20170608
  5. L CARTIN FF [Concomitant]
     Active Substance: LEVOCARNITINE
  6. FLAGYL [Concomitant]
     Active Substance: METRONIDAZOLE\METRONIDAZOLE HYDROCHLORIDE
  7. VITAMEDIN [Concomitant]
     Active Substance: CYANOCOBALAMIN\PYRIDOXINE HYDROCHLORIDE\THIAMINE
  8. ASCORBIC ACID W/CALCIUM PANTOTHENATE [Concomitant]
  9. CARBAGLU [Suspect]
     Active Substance: CARGLUMIC ACID
     Route: 048
     Dates: start: 20170609
  10. JUVELA N [Concomitant]
     Active Substance: TOCOPHERYL NICOTINATE, D-.ALPHA.

REACTIONS (4)
  - Nasopharyngitis [Unknown]
  - Infection [Recovering/Resolving]
  - Acidosis [Not Recovered/Not Resolved]
  - Multiple organ dysfunction syndrome [Fatal]

NARRATIVE: CASE EVENT DATE: 20180827
